FAERS Safety Report 7316191-9 (Version None)
Quarter: 2011Q1

REPORT INFORMATION
  Report Type: 
  Country: None (occurrence: None)
  Receive Date: 20110225
  Receipt Date: 20110217
  Transmission Date: 20110831
  Serious: Yes (Death)
  Sender: FDA-Public Use
  Company Number: US-PURDUE-USA-2010-0054090

PATIENT
  Age: 44 Year
  Sex: Female

DRUGS (5)
  1. CLONIDINE [Concomitant]
  2. LITHIUM [Concomitant]
  3. ACETAMINOPHEN [Suspect]
     Indication: PRODUCT USED FOR UNKNOWN INDICATION
  4. OXYCONTIN [Suspect]
     Indication: PRODUCT USED FOR UNKNOWN INDICATION
     Dosage: UNK
  5. VICODIN [Suspect]
     Indication: PRODUCT USED FOR UNKNOWN INDICATION

REACTIONS (7)
  - BLOOD GLUCOSE DECREASED [None]
  - CARDIAC ARREST [None]
  - HEPATIC FAILURE [None]
  - PNEUMONIA [None]
  - MULTIPLE DRUG OVERDOSE INTENTIONAL [None]
  - RENAL FAILURE [None]
  - COMPLETED SUICIDE [None]
